FAERS Safety Report 6267964-5 (Version None)
Quarter: 2009Q3

REPORT INFORMATION
  Report Type: 
  Country: None (occurrence: None)
  Receive Date: 20090713
  Receipt Date: 20090629
  Transmission Date: 20100115
  Serious: Yes (Hospitalization)
  Sender: FDA-Public Use
  Company Number: 2008-177914-NL

PATIENT
  Age: 30 Year
  Sex: Female
  Weight: 81.6 kg

DRUGS (1)
  1. NUVARING [Suspect]
     Indication: CONTRACEPTION
     Dates: start: 20030806, end: 20050701

REACTIONS (3)
  - DEEP VEIN THROMBOSIS [None]
  - FIBROADENOMA OF BREAST [None]
  - HYPOKALAEMIA [None]
